FAERS Safety Report 7328676-X (Version None)
Quarter: 2011Q1

REPORT INFORMATION
  Report Type: 
  Country: None (occurrence: None)
  Receive Date: 20110225
  Receipt Date: 20110225
  Transmission Date: 20110831
  Serious: No
  Sender: FDA-Public Use
  Company Number: None

PATIENT
  Age: 57 Year
  Sex: Male
  Weight: 97.5234 kg

DRUGS (2)
  1. LORAZEPAM [Suspect]
     Indication: INSOMNIA
     Dosage: 1 MG. NIGHTLY PO
     Route: 048
     Dates: start: 20100101, end: 20110224
  2. LORAZEPAM [Suspect]
     Indication: ANXIETY
     Dosage: 1 MG. NIGHTLY PO
     Route: 048
     Dates: start: 20100101, end: 20110224

REACTIONS (1)
  - MALE ORGASMIC DISORDER [None]
